FAERS Safety Report 9773046 (Version 1)
Quarter: 2013Q4

REPORT INFORMATION
  Report Type: Spontaneous
  Country: US (occurrence: None)
  Receive Date: 20131218
  Receipt Date: 20131218
  Transmission Date: 20140711
  Serious: Yes (Hospitalization)
  Sender: FDA-Public Use
  Company Number: None

PATIENT
  Age: 83 Year
  Sex: Male

DRUGS (1)
  1. ZYTIGA [Suspect]
     Indication: PROSTATE CANCER
     Dosage: 4 TIMES A DAY
     Dates: start: 20130807, end: 20131205

REACTIONS (4)
  - Local swelling [None]
  - Infection [None]
  - Blood urine present [None]
  - Haemorrhage urinary tract [None]
